FAERS Safety Report 8874836 (Version 1)
Quarter: 2012Q4

REPORT INFORMATION
  Report Type: 
  Country: US (occurrence: US)
  Receive Date: 20121030
  Receipt Date: 20121030
  Transmission Date: 20130627
  Serious: Yes (Other)
  Sender: FDA-Public Use
  Company Number: US-SANOFI-AVENTIS-2012SA078370

PATIENT
  Age: 23 Year
  Sex: Male

DRUGS (7)
  1. CYCLOPHOSPHAMIDE [Suspect]
     Indication: SEIZURES
     Route: 065
  2. PHENYTOIN [Suspect]
     Indication: SEIZURES
     Route: 065
  3. TOPIRAMATE [Suspect]
     Indication: SEIZURES
     Route: 065
  4. VALPROIC ACID [Suspect]
     Indication: SEIZURES
     Route: 065
  5. LEVETIRACETAM [Suspect]
     Indication: SEIZURES
     Route: 065
  6. HYDROXYCHLOROQUINE SULFATE [Suspect]
     Indication: SEIZURES
     Route: 065
  7. CORTICOSTEROID NOS [Suspect]
     Indication: SEIZURES
     Route: 065

REACTIONS (1)
  - Convulsion [Unknown]
